FAERS Safety Report 18572679 (Version 4)
Quarter: 2021Q1

REPORT INFORMATION
  Report Type: Spontaneous
  Country: US (occurrence: US)
  Receive Date: 20201202
  Receipt Date: 20210317
  Transmission Date: 20210419
  Serious: Yes (Other)
  Sender: FDA-Public Use
  Company Number: US-AMGEN-USASP2020193049

PATIENT
  Age: 79 Year
  Sex: Female

DRUGS (1)
  1. PROLIA [Suspect]
     Active Substance: DENOSUMAB
     Indication: PRODUCT USED FOR UNKNOWN INDICATION
     Dosage: UNK
     Route: 065
     Dates: end: 201910

REACTIONS (9)
  - Rib fracture [Recovered/Resolved]
  - Bone density decreased [Unknown]
  - Fatigue [Recovered/Resolved]
  - Heart rate irregular [Not Recovered/Not Resolved]
  - Adverse event [Unknown]
  - Bone pain [Not Recovered/Not Resolved]
  - Knee operation [Recovering/Resolving]
  - Muscle atrophy [Recovered/Resolved]
  - Myalgia [Not Recovered/Not Resolved]

NARRATIVE: CASE EVENT DATE: 2020
